FAERS Safety Report 9837840 (Version 1)
Quarter: 2014Q1

REPORT INFORMATION
  Report Type: Spontaneous
  Country: US (occurrence: US)
  Receive Date: 20140123
  Receipt Date: 20140123
  Transmission Date: 20141002
  Serious: Yes (Hospitalization, Other)
  Sender: FDA-Public Use
  Company Number: US-SA-2014SA009054

PATIENT
  Sex: Female

DRUGS (2)
  1. LANTUS SOLOSTAR [Suspect]
     Indication: TYPE 2 DIABETES MELLITUS
     Dosage: DOSE:40 UNIT(S)
     Route: 058
  2. SOLOSTAR [Concomitant]
     Indication: TYPE 2 DIABETES MELLITUS

REACTIONS (6)
  - Neuropathic arthropathy [Not Recovered/Not Resolved]
  - Fall [Not Recovered/Not Resolved]
  - Joint injury [Not Recovered/Not Resolved]
  - Cellulitis [Not Recovered/Not Resolved]
  - Coma [Recovered/Resolved]
  - Drug dose omission [Unknown]
